FAERS Safety Report 7310885-7 (Version None)
Quarter: 2011Q1

REPORT INFORMATION
  Report Type: 
  Country: None (occurrence: None)
  Receive Date: 20110224
  Receipt Date: 20110214
  Transmission Date: 20110831
  Serious: Yes (Hospitalization, Other)
  Sender: FDA-Public Use
  Company Number: PH-CUBIST-2011S1000090

PATIENT
  Sex: Male
  Weight: 55 kg

DRUGS (6)
  1. OXYCONTIN [Concomitant]
     Indication: PAIN
  2. PIPERACILLIN AND TAZOBACTAM [Concomitant]
     Indication: PRODUCT USED FOR UNKNOWN INDICATION
  3. CUBICIN [Suspect]
     Indication: ENDOCARDITIS
     Route: 042
     Dates: start: 20110205, end: 20110207
  4. CUBICIN [Suspect]
     Indication: SKIN INFECTION
     Route: 042
     Dates: start: 20110205, end: 20110207
  5. CUBICIN [Suspect]
     Indication: STAPHYLOCOCCAL BACTERAEMIA
     Route: 042
     Dates: start: 20110205, end: 20110207
  6. GENTAMICIN [Concomitant]
     Indication: PRODUCT USED FOR UNKNOWN INDICATION

REACTIONS (1)
  - PNEUMONIA [None]
